FAERS Safety Report 7107296-6 (Version None)
Quarter: 2010Q4

REPORT INFORMATION
  Report Type: 
  Country: None (occurrence: None)
  Receive Date: 20101116
  Receipt Date: 20101111
  Transmission Date: 20110411
  Serious: Yes (Hospitalization, Other)
  Sender: FDA-Public Use
  Company Number: SE-ABBOTT-10P-150-0684945-00

PATIENT
  Sex: Male

DRUGS (1)
  1. HUMIRA [Suspect]
     Indication: RHEUMATOID ARTHRITIS
     Route: 058
     Dates: start: 20050913, end: 20091108

REACTIONS (6)
  - ARTHRITIS [None]
  - ASTHENIA [None]
  - BEDRIDDEN [None]
  - DYSPNOEA [None]
  - FATIGUE [None]
  - PNEUMOTHORAX [None]
